FAERS Safety Report 11720796 (Version 3)
Quarter: 2015Q4

REPORT INFORMATION
  Report Type: Spontaneous
  Country: US (occurrence: US)
  Receive Date: 20151110
  Receipt Date: 20151222
  Transmission Date: 20160304
  Serious: No
  Sender: FDA-Public Use
  Company Number: US-PFIZER INC-2015364652

PATIENT
  Age: 32 Year
  Sex: Female

DRUGS (3)
  1. SUTENT [Suspect]
     Active Substance: SUNITINIB MALATE
     Indication: NEOPLASM MALIGNANT
     Dosage: 50 MG, CYCLIC (EVERY DAY FOR 14 DAYS ON AND 7 DAYS OFF)
     Route: 048
     Dates: start: 20151008
  2. SUTENT [Suspect]
     Active Substance: SUNITINIB MALATE
     Indication: RENAL CELL CARCINOMA
  3. SUTENT [Suspect]
     Active Substance: SUNITINIB MALATE
     Indication: ECZEMA

REACTIONS (16)
  - Hypoaesthesia [Unknown]
  - Palmar-plantar erythrodysaesthesia syndrome [Unknown]
  - Mouth haemorrhage [Unknown]
  - Dental discomfort [Unknown]
  - Fatigue [Unknown]
  - Contusion [Unknown]
  - Acne [Unknown]
  - Headache [Unknown]
  - Pyrexia [Unknown]
  - Hyperaesthesia [Unknown]
  - Paraesthesia [Unknown]
  - Skin fissures [Unknown]
  - Hot flush [Unknown]
  - Dry mouth [Unknown]
  - Jaw disorder [Unknown]
  - Glossodynia [Unknown]

NARRATIVE: CASE EVENT DATE: 201510
